FAERS Safety Report 6817645-1 (Version None)
Quarter: 2010Q3

REPORT INFORMATION
  Report Type: 
  Country: None (occurrence: None)
  Receive Date: 20100706
  Receipt Date: 20100629
  Transmission Date: 20110219
  Serious: Yes (Hospitalization)
  Sender: FDA-Public Use
  Company Number: FR-PFIZER INC-2010080849

PATIENT
  Age: 45 Year
  Sex: Male

DRUGS (2)
  1. PEGVISOMANT [Suspect]
     Indication: ACROMEGALY
     Dosage: UNK
     Dates: start: 20060411
  2. PEGVISOMANT [Suspect]
     Dosage: UNK
     Dates: start: 20090706

REACTIONS (1)
  - PITUITARY TUMOUR RECURRENT [None]
